FAERS Safety Report 10216313 (Version 2)
Quarter: 2014Q2

REPORT INFORMATION
  Report Type: Spontaneous
  Country: US (occurrence: US)
  Receive Date: 20140604
  Receipt Date: 20140625
  Transmission Date: 20141212
  Serious: Yes (Hospitalization)
  Sender: FDA-Public Use
  Company Number: US-SA-2014SA071687

PATIENT
  Age: 14 Year
  Sex: Female
  Weight: 51 kg

DRUGS (9)
  1. ENOXAPARIN SODIUM [Suspect]
     Indication: ANTICOAGULANT THERAPY
     Route: 058
     Dates: start: 20120224, end: 20120525
  2. ASPIRIN [Suspect]
     Indication: ANTIPLATELET THERAPY
     Route: 048
     Dates: start: 20120224, end: 20120525
  3. VORICONAZOLE [Suspect]
     Indication: ASPERGILLUS INFECTION
     Route: 065
     Dates: start: 20120501, end: 20140531
  4. VORICONAZOLE [Suspect]
     Indication: ASPERGILLUS INFECTION
     Route: 048
     Dates: start: 20120208, end: 20120430
  5. PREDNISONE [Suspect]
     Indication: VASCULITIS
     Dosage: 10 MG EVERY AM AND 20 MG EVERY PM
     Route: 048
     Dates: start: 20120101
  6. METHOTREXATE [Suspect]
     Indication: VASCULITIS
     Route: 048
     Dates: start: 20120427
  7. LEUCOVORIN [Concomitant]
     Indication: NEUTROPENIA
     Dates: start: 20120427
  8. LANSOPRAZOLE [Concomitant]
     Indication: PROPHYLAXIS
     Dates: start: 20120204
  9. CLARITHROMYCIN [Concomitant]
     Indication: MYCOBACTERIAL INFECTION

REACTIONS (1)
  - Joint injury [Recovered/Resolved]
